FAERS Safety Report 25961717 (Version 1)
Quarter: 2025Q4

REPORT INFORMATION
  Report Type: Spontaneous
  Country: EU (occurrence: EU)
  Receive Date: 20251027
  Receipt Date: 20251027
  Transmission Date: 20260118
  Serious: Yes (Death)
  Sender: AZURITY PHARMACEUTICALS
  Company Number: EU-AZURITY PHARMACEUTICALS, INC.-AZR202510-003277

PATIENT
  Age: 63 Year
  Sex: Male
  Weight: 68.4 kg

DRUGS (11)
  1. TRIPTORELIN [Suspect]
     Active Substance: TRIPTORELIN
     Indication: Prostate cancer
     Dosage: 22.5 MILLIGRAM IN 24 WEEKS
     Route: 030
     Dates: start: 20250701, end: 20250701
  2. NEOBOMB1 GA-68 [Suspect]
     Active Substance: NEOBOMB1 GA-68
     Indication: Neuroendocrine cancer of the prostate metastatic
     Dosage: 5.38 MILLICURIE, SINGLE
     Route: 042
     Dates: start: 20250619
  3. GALLIUM OXODOTREOTIDE GA-68 [Suspect]
     Active Substance: GALLIUM OXODOTREOTIDE GA-68
     Indication: Neuroendocrine cancer of the prostate metastatic
     Dosage: 2.74 MILLICURIE, SINGLE
     Route: 042
     Dates: start: 20250620, end: 20250620
  4. GALLIUM GA-68 GOZETOTIDE [Suspect]
     Active Substance: GALLIUM GA-68 GOZETOTIDE
     Indication: Neuroendocrine cancer of the prostate metastatic
     Dosage: 5.98 MILLICURIE, SINGLE
     Route: 042
     Dates: start: 20250625, end: 20250625
  5. LUTETIUM OXODOTREOTIDE LU-177 [Suspect]
     Active Substance: LUTETIUM OXODOTREOTIDE LU-177
     Indication: Neuroendocrine cancer of the prostate metastatic
     Dosage: 197.58 MILLICURIE, SINGLE
     Route: 042
     Dates: start: 20250716
  6. ENALAPRIL [Concomitant]
     Active Substance: ENALAPRIL
     Indication: Product used for unknown indication
     Dosage: UNK
     Route: 065
     Dates: start: 2021
  7. Aclidinium formoterol [Concomitant]
     Indication: Product used for unknown indication
     Dosage: UNK
     Route: 065
     Dates: start: 2024
  8. MORPHINE [Concomitant]
     Active Substance: MORPHINE
     Indication: Product used for unknown indication
     Dosage: UNK
     Route: 065
     Dates: start: 202503, end: 20250804
  9. OMEPRAZOLE [Concomitant]
     Active Substance: OMEPRAZOLE
     Indication: Product used for unknown indication
     Dosage: UNK
     Route: 065
     Dates: start: 202503
  10. ACETAMINOPHEN [Concomitant]
     Active Substance: ACETAMINOPHEN
     Indication: Product used for unknown indication
     Dosage: UNK
     Route: 065
     Dates: start: 20250612
  11. DEXAMETHASONE [Concomitant]
     Active Substance: DEXAMETHASONE
     Indication: Product used for unknown indication
     Dosage: UNK
     Route: 065
     Dates: start: 20250701, end: 20250804

REACTIONS (2)
  - Death [Fatal]
  - Hot flush [Recovering/Resolving]

NARRATIVE: CASE EVENT DATE: 20250701
